FAERS Safety Report 8663930 (Version 2)
Quarter: 2014Q1

REPORT INFORMATION
  Report Type: Spontaneous
  Country: CN (occurrence: CN)
  Receive Date: 20120713
  Receipt Date: 20140327
  Transmission Date: 20141002
  Serious: Yes (Hospitalization)
  Sender: FDA-Public Use
  Company Number: PHHY2012CN058354

PATIENT
  Age: 38 Hour
  Sex: Male
  Weight: 3.5 kg

DRUGS (2)
  1. HALOPERIDOL [Suspect]
     Dosage: MATERNAL DOSE 4 MG TID
     Route: 064
  2. CLOZAPINE [Suspect]
     Dosage: MATERNAL DOSE 50 MG TID
     Route: 064

REACTIONS (20)
  - Haemorrhage subcutaneous [Unknown]
  - Poor sucking reflex [Unknown]
  - Dysphagia [Unknown]
  - Oedema peripheral [Unknown]
  - Convulsion [Recovered/Resolved]
  - Cyanosis [Unknown]
  - Oedema [Unknown]
  - Scleral discolouration [Unknown]
  - Nail discolouration [Unknown]
  - Irritability [Unknown]
  - Staring [Unknown]
  - Muscle twitching [Unknown]
  - Vomiting [Unknown]
  - Yellow skin [Unknown]
  - Muscle tightness [Unknown]
  - Gaze palsy [Unknown]
  - Muscle spasms [Unknown]
  - Drug withdrawal syndrome neonatal [Unknown]
  - Foetal exposure during pregnancy [Unknown]
  - Eye movement disorder [Recovered/Resolved]
